FAERS Safety Report 9248417 (Version 2)
Quarter: 2013Q2

REPORT INFORMATION
  Report Type: Spontaneous
  Country: GB (occurrence: GB)
  Receive Date: 20130423
  Receipt Date: 20130426
  Transmission Date: 20140414
  Serious: Yes (Other)
  Sender: FDA-Public Use
  Company Number: GB-TEVA-397055ISR

PATIENT
  Age: 38 Year
  Sex: Female

DRUGS (2)
  1. COPAXONE [Suspect]
     Dosage: 20 MILLIGRAM DAILY;
     Route: 058
     Dates: start: 20130321
  2. LAMOTRIGINE [Concomitant]
     Indication: EPILEPSY
     Dosage: 50 MILLIGRAM DAILY; TREATMENT STARTED PRIOR TO 2008
     Route: 048

REACTIONS (12)
  - Cognitive disorder [Unknown]
  - Muscular weakness [Not Recovered/Not Resolved]
  - Asthenia [Unknown]
  - Thinking abnormal [Unknown]
  - Bradyphrenia [Unknown]
  - Headache [Recovering/Resolving]
  - Disturbance in attention [Not Recovered/Not Resolved]
  - Limb discomfort [Unknown]
  - Ear pain [Unknown]
  - Sinus disorder [Recovering/Resolving]
  - Rhinorrhoea [Unknown]
  - Nasopharyngitis [Unknown]
